FAERS Safety Report 15706034 (Version 1)
Quarter: 2018Q4

REPORT INFORMATION
  Report Type: Spontaneous
  Country: BR (occurrence: BR)
  Receive Date: 20181210
  Receipt Date: 20181210
  Transmission Date: 20190205
  Serious: Yes (Death)
  Sender: FDA-Public Use
  Company Number: BR-LPDUSPRD-20182303

PATIENT
  Age: 82 Year
  Sex: Female

DRUGS (1)
  1. FERINJECT [Suspect]
     Active Substance: FERRIC CARBOXYMALTOSE
     Dosage: 500 MG, 1 TOTAL
     Route: 042
     Dates: start: 20181121

REACTIONS (4)
  - Vulvovaginal erythema [Unknown]
  - Mouth haemorrhage [Unknown]
  - Perianal erythema [Unknown]
  - Death [Fatal]

NARRATIVE: CASE EVENT DATE: 201811
